FAERS Safety Report 10401619 (Version 1)
Quarter: 2014Q1

REPORT INFORMATION
  Report Type: Spontaneous
  Country: US (occurrence: None)
  Receive Date: 20130815
  Receipt Date: 20130815
  Transmission Date: 20141002
  Serious: Yes (Other)
  Sender: FDA-Public Use
  Company Number: ADR-2012-01563

PATIENT
  Sex: Male

DRUGS (2)
  1. GABLOFEN INTRATHECAL (BACLOFEN INJECTION) 2,000MCG/ML [Suspect]
     Indication: MUSCLE SPASTICITY
  2. GABLOFEN INTRATHECAL (BACLOFEN INJECTION) 2,000MCG/ML [Suspect]
     Indication: CEREBRAL PALSY

REACTIONS (8)
  - Drug withdrawal syndrome [None]
  - Pain [None]
  - Insomnia [None]
  - Dyskinesia [None]
  - Depression [None]
  - Muscle contracture [None]
  - Lethargy [None]
  - Overdose [None]
